FAERS Safety Report 7207573-4 (Version None)
Quarter: 2010Q4

REPORT INFORMATION
  Report Type: 
  Country: None (occurrence: None)
  Receive Date: 20101221
  Receipt Date: 20101213
  Transmission Date: 20110411
  Serious: Yes (Other)
  Sender: FDA-Public Use
  Company Number: A0899455A

PATIENT
  Age: 35 Year
  Sex: Male

DRUGS (1)
  1. UREA HYDROGEN PEROXIDE (FORMULATION UNKNOWN) [Suspect]
     Dosage: AURAL

REACTIONS (3)
  - APPLICATION SITE PAIN [None]
  - DEAFNESS UNILATERAL [None]
  - TYMPANIC MEMBRANE DISORDER [None]
